FAERS Safety Report 18629883 (Version 14)
Quarter: 2025Q2

REPORT INFORMATION
  Report Type: Report from Study
  Country: US (occurrence: US)
  Receive Date: 20201217
  Receipt Date: 20250530
  Transmission Date: 20250717
  Serious: Yes (Hospitalization, Other)
  Sender: TAKEDA
  Company Number: US-TAKEDA-US202015957

PATIENT
  Age: 50 Year
  Sex: Female
  Weight: 136 kg

DRUGS (25)
  1. LANADELUMAB [Suspect]
     Active Substance: LANADELUMAB
     Indication: Immune system disorder
     Dosage: 300 MILLIGRAM, Q2WEEKS
     Dates: start: 20190528
  2. LANADELUMAB [Suspect]
     Active Substance: LANADELUMAB
     Dosage: 300 MILLIGRAM, Q2WEEKS
     Dates: start: 20190530
  3. LANADELUMAB [Suspect]
     Active Substance: LANADELUMAB
  4. RUCONEST [Concomitant]
     Active Substance: CONESTAT ALFA
  5. FLUTICASONE FUROATE\SALMETEROL XINAFOATE [Concomitant]
     Active Substance: FLUTICASONE FUROATE\SALMETEROL XINAFOATE
  6. EPINEPHRINE [Concomitant]
     Active Substance: EPINEPHRINE
  7. SODIUM CHLORIDE [Concomitant]
     Active Substance: SODIUM CHLORIDE
  8. BREO ELLIPTA [Concomitant]
     Active Substance: FLUTICASONE FUROATE\VILANTEROL TRIFENATATE
  9. ROPINIROLE HYDROCHLORIDE [Concomitant]
     Active Substance: ROPINIROLE HYDROCHLORIDE
  10. PREDNISONE [Concomitant]
     Active Substance: PREDNISONE
  11. GABAPENTIN [Concomitant]
     Active Substance: GABAPENTIN
  12. ZYRTEC [Concomitant]
     Active Substance: CETIRIZINE HYDROCHLORIDE
  13. FIORICET [Concomitant]
     Active Substance: ACETAMINOPHEN\BUTALBITAL\CAFFEINE
  14. PLAQUENIL [Concomitant]
     Active Substance: HYDROXYCHLOROQUINE SULFATE
  15. STERILE WATER [Concomitant]
     Active Substance: WATER
  16. TIZANIDINE HYDROCHLORIDE [Concomitant]
     Active Substance: TIZANIDINE HYDROCHLORIDE
  17. CLONAZEPAM [Concomitant]
     Active Substance: CLONAZEPAM
  18. LOVENOX [Concomitant]
     Active Substance: ENOXAPARIN SODIUM
  19. LUNESTA [Concomitant]
     Active Substance: ESZOPICLONE
  20. PLAVIX [Concomitant]
     Active Substance: CLOPIDOGREL BISULFATE
  21. CYMBALTA [Concomitant]
     Active Substance: DULOXETINE HYDROCHLORIDE
  22. CELLCEPT [Concomitant]
     Active Substance: MYCOPHENOLATE MOFETIL
  23. PROAIR HFA [Concomitant]
     Active Substance: ALBUTEROL SULFATE
  24. VENOFER [Concomitant]
     Active Substance: IRON SUCROSE
  25. ROPINIROLE [Concomitant]
     Active Substance: ROPINIROLE

REACTIONS (14)
  - Thrombosis [Unknown]
  - Sinus disorder [Unknown]
  - Pharyngitis streptococcal [Unknown]
  - Urinary tract infection [Unknown]
  - Urticaria [Unknown]
  - Vaginal haemorrhage [Unknown]
  - Coagulopathy [Unknown]
  - Product dose omission issue [Unknown]
  - Tooth fracture [Unknown]
  - Respiratory tract infection [Unknown]
  - Respiratory tract infection viral [Unknown]
  - Sinusitis [Unknown]
  - Bronchitis [Unknown]
  - Hereditary angioedema [Unknown]

NARRATIVE: CASE EVENT DATE: 20221015
